FAERS Safety Report 5062775-0 (Version None)
Quarter: 2006Q3

REPORT INFORMATION
  Report Type: 
  Country: None (occurrence: None)
  Receive Date: 20060725
  Receipt Date: 20060725
  Transmission Date: 20061208
  Serious: Yes (Life-Threatening)
  Sender: FDA-Public Use
  Company Number: None

PATIENT
  Age: 90 Year
  Sex: Female
  Weight: 77.1115 kg

DRUGS (4)
  1. SUCCINYLCHOLINE CHLORIDE [Suspect]
     Indication: INTUBATION
     Dosage: 100 MG X1 IV
     Route: 042
     Dates: start: 20060709
  2. SUCCINYLCHOLINE CHLORIDE [Suspect]
     Indication: RESPIRATORY FAILURE
     Dosage: 100 MG X1 IV
     Route: 042
     Dates: start: 20060709
  3. VERSED [Concomitant]
  4. OXYGEN [Concomitant]

REACTIONS (2)
  - INFUSION RELATED REACTION [None]
  - MUSCLE RIGIDITY [None]
